FAERS Safety Report 11395325 (Version 3)
Quarter: 2015Q4

REPORT INFORMATION
  Report Type: Report from Study
  Country: US (occurrence: US)
  Receive Date: 20150819
  Receipt Date: 20151129
  Transmission Date: 20160304
  Serious: Yes (Hospitalization, Other)
  Sender: FDA-Public Use
  Company Number: US-ALXN-A201503056AA

PATIENT
  Age: 41 Year
  Sex: Female

DRUGS (1)
  1. SOLIRIS [Suspect]
     Active Substance: ECULIZUMAB
     Indication: HAEMOLYTIC URAEMIC SYNDROME
     Dosage: 1200 MG, Q2W
     Route: 042
     Dates: start: 20140430, end: 20150512

REACTIONS (8)
  - Diabetic ketoacidosis [Unknown]
  - Hypertension [Not Recovered/Not Resolved]
  - Abdominal pain [Not Recovered/Not Resolved]
  - Pain [Unknown]
  - Swelling [Unknown]
  - Swelling [Not Recovered/Not Resolved]
  - Gait disturbance [Unknown]
  - Dyspnoea [Recovered/Resolved]

NARRATIVE: CASE EVENT DATE: 20150801
